APPROVED DRUG PRODUCT: CEPHALEXIN
Active Ingredient: CEPHALEXIN
Strength: EQ 500MG BASE
Dosage Form/Route: CAPSULE;ORAL
Application: A062871 | Product #001
Applicant: YOSHITOMI PHARMACEUTICAL INDUSTRIES LTD
Approved: Jul 5, 1988 | RLD: No | RS: No | Type: DISCN